FAERS Safety Report 5460676-7 (Version None)
Quarter: 2007Q3

REPORT INFORMATION
  Report Type: 
  Country: None (occurrence: None)
  Receive Date: 20070919
  Receipt Date: 20070911
  Transmission Date: 20080115
  Serious: Yes (Other)
  Sender: FDA-Public Use
  Company Number: BR-ABBOTT-07P-020-0416707-00

PATIENT
  Age: 71 Year
  Sex: Male
  Weight: 79 kg

DRUGS (10)
  1. REMIFENTANIL [Suspect]
     Indication: ANAESTHESIA
     Route: 065
  2. REMIFENTANIL [Suspect]
  3. METFORMIN HCL [Concomitant]
     Indication: DRUG USE FOR UNKNOWN INDICATION
     Route: 065
  4. LOSARTAN POSTASSIUM [Concomitant]
     Indication: DRUG USE FOR UNKNOWN INDICATION
     Route: 065
  5. DILTIAZEM [Concomitant]
     Indication: DRUG USE FOR UNKNOWN INDICATION
     Route: 065
  6. GLYCERYL TRINITRATE [Concomitant]
     Indication: DRUG USE FOR UNKNOWN INDICATION
     Route: 065
  7. ASPIRIN [Concomitant]
     Indication: DRUG USE FOR UNKNOWN INDICATION
     Route: 065
  8. PROPOFOL [Concomitant]
     Indication: INDUCTION OF ANAESTHESIA
  9. CISATRACURIUM [Concomitant]
     Indication: INDUCTION OF ANAESTHESIA
  10. SEVOFLURANE [Concomitant]
     Indication: MAINTENANCE OF ANAESTHESIA
     Route: 055

REACTIONS (1)
  - ACUTE CORONARY SYNDROME [None]
